FAERS Safety Report 24111562 (Version 1)
Quarter: 2024Q3

REPORT INFORMATION
  Report Type: Spontaneous
  Country: US (occurrence: US)
  Receive Date: 20240718
  Receipt Date: 20240718
  Transmission Date: 20241017
  Serious: Yes (Other)
  Sender: CSL Plasma
  Company Number: US-CSLP-26602570120-V11065616-69

PATIENT
  Age: 48 Year
  Sex: Male

DRUGS (3)
  1. ANTICOAGULANT SODIUM CITRATE [Suspect]
     Active Substance: SODIUM CITRATE
     Indication: Anticoagulant therapy
     Route: 050
     Dates: start: 20240712, end: 20240712
  2. HYDROCHLOROTHIAZIDE [Concomitant]
     Active Substance: HYDROCHLOROTHIAZIDE
     Indication: Blood pressure measurement
  3. SALINE [Concomitant]
     Active Substance: SODIUM CHLORIDE
     Indication: Product used for unknown indication
     Dates: start: 20240712, end: 20240712

REACTIONS (17)
  - Loss of consciousness [Recovered/Resolved]
  - Muscle twitching [Recovered/Resolved]
  - Tachypnoea [Recovered/Resolved]
  - Tetany [Recovered/Resolved]
  - Pain [Recovered/Resolved]
  - Chills [Recovered/Resolved]
  - Muscle spasms [Recovered/Resolved]
  - Pallor [Recovered/Resolved]
  - Peripheral coldness [Recovered/Resolved]
  - Anxiety [Recovered/Resolved]
  - Dyspnoea [Recovered/Resolved]
  - Tremor [Recovered/Resolved]
  - Cold sweat [Recovered/Resolved]
  - Restlessness [Recovered/Resolved]
  - Confusional state [Recovered/Resolved]
  - Dyskinesia [Recovered/Resolved]
  - Disorientation [Recovered/Resolved]

NARRATIVE: CASE EVENT DATE: 20240712
